FAERS Safety Report 6744518-5 (Version None)
Quarter: 2010Q2

REPORT INFORMATION
  Report Type: 
  Country: None (occurrence: None)
  Receive Date: 20100526
  Receipt Date: 20100526
  Transmission Date: 20101027
  Serious: No
  Sender: FDA-Public Use
  Company Number: None

PATIENT
  Age: 61 Year
  Sex: Male
  Weight: 95.9 kg

DRUGS (1)
  1. DIVALPROEX SODIUM [Suspect]
     Indication: CONVULSION
     Dosage: 500 MG EVERY DAY PO
     Route: 048
     Dates: start: 20091008, end: 20100503

REACTIONS (3)
  - ABDOMINAL DISCOMFORT [None]
  - CONVULSION [None]
  - PANCREATIC ENZYMES INCREASED [None]
